FAERS Safety Report 7593907-8 (Version None)
Quarter: 2011Q3

REPORT INFORMATION
  Report Type: 
  Country: None (occurrence: None)
  Receive Date: 20110706
  Receipt Date: 20110629
  Transmission Date: 20111222
  Serious: Yes (Hospitalization, Other)
  Sender: FDA-Public Use
  Company Number: PHHY2011BR27496

PATIENT
  Sex: Female

DRUGS (3)
  1. EXELON [Suspect]
     Dosage: 1.5 MG, UNK
  2. EXELON [Suspect]
     Dosage: 3 MG, UNK
  3. EXELON [Suspect]
     Dosage: 6 MG, UNK

REACTIONS (5)
  - ABDOMINAL PAIN [None]
  - PAIN IN EXTREMITY [None]
  - DRUG INEFFECTIVE [None]
  - CHOLELITHIASIS [None]
  - DIARRHOEA [None]
